FAERS Safety Report 6794813-9 (Version None)
Quarter: 2010Q2

REPORT INFORMATION
  Report Type: 
  Country: None (occurrence: None)
  Receive Date: 20100625
  Receipt Date: 20100621
  Transmission Date: 20101027
  Serious: Yes (Death)
  Sender: FDA-Public Use
  Company Number: JP-BRISTOL-MYERS SQUIBB COMPANY-15161482

PATIENT
  Age: 74 Year
  Sex: Male

DRUGS (6)
  1. AVAPRO [Suspect]
     Route: 048
  2. LIPITOR [Concomitant]
  3. HALCION [Concomitant]
  4. ZYLORIC [Concomitant]
  5. LASIX [Concomitant]
  6. MOBIC [Concomitant]

REACTIONS (1)
  - DEATH [None]
